FAERS Safety Report 16119809 (Version 1)
Quarter: 2019Q1

REPORT INFORMATION
  Report Type: Spontaneous
  Country: NZ (occurrence: NZ)
  Receive Date: 20190326
  Receipt Date: 20190326
  Transmission Date: 20190418
  Serious: Yes (Other)
  Sender: FDA-Public Use
  Company Number: NZ-IMPAX LABORATORIES, LLC-2019-IPXL-00714

PATIENT
  Age: 4 Year
  Sex: Male

DRUGS (11)
  1. ADRENACLICK [Suspect]
     Active Substance: EPINEPHRINE
     Dosage: 0.2 MILLIGRAM
     Route: 065
  2. LIGNOCAINE HCL [Concomitant]
     Indication: CARDIAC ARREST
     Dosage: UNK
     Route: 065
  3. ADRENACLICK [Suspect]
     Active Substance: EPINEPHRINE
     Dosage: 0.2 MILLIGRAM,AT 34 MINUTE
     Route: 042
  4. ADRENACLICK [Suspect]
     Active Substance: EPINEPHRINE
     Dosage: 0.5 MICROGRAM/KILOGRAM, EVERY MIN
     Route: 040
  5. MAGNESIUM [Concomitant]
     Active Substance: MAGNESIUM
     Indication: CARDIAC ARREST
     Dosage: UNK
     Route: 065
  6. AMIODARONE [Concomitant]
     Active Substance: AMIODARONE
     Indication: CARDIAC ARREST
     Dosage: 10 MICROGRAM/KILOGRAM
     Route: 065
  7. CALCIUM GLUCONATE. [Concomitant]
     Active Substance: CALCIUM GLUCONATE
     Indication: CARDIAC ARREST
     Dosage: 1 MILLIGRAM/KILOGRAM
     Route: 065
  8. ADRENACLICK [Suspect]
     Active Substance: EPINEPHRINE
     Dosage: 0.05 MICROGRAM/KG/MIN
     Route: 065
  9. ADRENACLICK [Suspect]
     Active Substance: EPINEPHRINE
     Dosage: 0.2 MICROGRAM/KILOGRAM, EVERY MIN
     Route: 040
  10. ADRENACLICK [Suspect]
     Active Substance: EPINEPHRINE
     Dosage: 0.2 MILLIGRAM, AT 56 MINUTE
     Route: 040
  11. ADRENACLICK [Suspect]
     Active Substance: EPINEPHRINE
     Indication: CARDIAC ARREST
     Dosage: 0.2 MG-0.01 MG/KG
     Route: 040

REACTIONS (6)
  - Ventricular tachycardia [Recovered/Resolved]
  - Sinus bradycardia [Recovered/Resolved]
  - Drug ineffective for unapproved indication [Unknown]
  - Cardiac arrest [Recovered/Resolved]
  - Ventricular fibrillation [Recovered/Resolved]
  - Ventricular extrasystoles [Recovered/Resolved]
